FAERS Safety Report 6821267-6 (Version None)
Quarter: 2010Q3

REPORT INFORMATION
  Report Type: 
  Country: None (occurrence: None)
  Receive Date: 20100707
  Receipt Date: 20080702
  Transmission Date: 20110219
  Serious: No
  Sender: FDA-Public Use
  Company Number: US-PFIZER INC-2008040598

PATIENT
  Sex: Male
  Weight: 90.909 kg

DRUGS (5)
  1. ZOLOFT [Suspect]
     Indication: DEPRESSION
     Dates: start: 20070101
  2. VALPROIC ACID [Suspect]
  3. RISPERDAL [Concomitant]
     Route: 030
  4. ATENOLOL [Concomitant]
  5. ANTIHYPERTENSIVES [Concomitant]

REACTIONS (3)
  - ANORGASMIA [None]
  - EJACULATION DISORDER [None]
  - ERECTILE DYSFUNCTION [None]
